FAERS Safety Report 8901763 (Version 1)
Quarter: 2012Q4

REPORT INFORMATION
  Report Type: Spontaneous
  Country: US (occurrence: None)
  Receive Date: 20121105
  Receipt Date: 20121105
  Transmission Date: 20130627
  Serious: Yes (Death)
  Sender: FDA-Public Use
  Company Number: DKLU1085516

PATIENT
  Age: 17 Year
  Sex: Female

DRUGS (7)
  1. SABRIL [Suspect]
     Indication: EPILEPSY
     Route: 048
     Dates: start: 20120301
  2. SABRIL [Suspect]
     Indication: COMPLEX PARTIAL SEIZURES
     Route: 048
     Dates: start: 20120301
  3. TEGRETOL (CARBAMAZEPINE) [Concomitant]
  4. KLONOPIN (CLONAZEPAM) [Concomitant]
  5. VIMPAT (LACOSAMIDE) [Concomitant]
  6. KEPPRA (LEVEITRACETAM) [Concomitant]
  7. DEPAKOTE (VALPROATE SEMISODIUM) [Concomitant]

REACTIONS (1)
  - Death [None]
